FAERS Safety Report 6937636-X (Version None)
Quarter: 2010Q3

REPORT INFORMATION
  Report Type: 
  Country: None (occurrence: None)
  Receive Date: 20100820
  Receipt Date: 20100820
  Transmission Date: 20110219
  Serious: Yes (Disabling)
  Sender: FDA-Public Use
  Company Number: None

PATIENT
  Age: 72 Year
  Sex: Female
  Weight: 68.0396 kg

DRUGS (1)
  1. LEVAQUIN [Suspect]
     Indication: SINUSITIS
     Dosage: 500 MG 10 DAYS ORAL
     Route: 048
     Dates: start: 20100611, end: 20100622

REACTIONS (4)
  - ABASIA [None]
  - TENDON PAIN [None]
  - WALKING AID USER [None]
  - WHEELCHAIR USER [None]
